FAERS Safety Report 7064756-4 (Version None)
Quarter: 2010Q4

REPORT INFORMATION
  Report Type: 
  Country: None (occurrence: None)
  Receive Date: 20101027
  Receipt Date: 19851205
  Transmission Date: 20110411
  Serious: Yes (Death, Life-Threatening, Hospitalization)
  Sender: FDA-Public Use
  Company Number: US-ROCHE-850201641001

PATIENT
  Sex: Male

DRUGS (4)
  1. VALIUM [Suspect]
     Indication: PRODUCT USED FOR UNKNOWN INDICATION
     Route: 042
     Dates: start: 19841122, end: 19841122
  2. DEMEROL [Concomitant]
     Route: 065
  3. VISTARIL [Concomitant]
     Route: 065
  4. NEMBUTAL [Concomitant]
     Route: 065

REACTIONS (3)
  - COMA [None]
  - DEATH [None]
  - RESPIRATORY ARREST [None]
